FAERS Safety Report 20859413 (Version 3)
Quarter: 2022Q4

REPORT INFORMATION
  Report Type: Spontaneous
  Country: US (occurrence: None)
  Receive Date: 20220523
  Receipt Date: 20221026
  Transmission Date: 20230113
  Serious: Yes (Other)
  Sender: FDA-Public Use
  Company Number: US-Emmaus Medical, Inc.-EMM202205-000087

PATIENT
  Age: 46 Year
  Sex: Male
  Weight: 50.8 kg

DRUGS (6)
  1. ENDARI [Suspect]
     Active Substance: GLUTAMINE
     Indication: Sickle cell anaemia
     Dosage: 10 GRAM
     Route: 048
     Dates: start: 2010
  2. ENDARI [Suspect]
     Active Substance: GLUTAMINE
     Indication: Sickle cell anaemia with crisis
     Dosage: 10 G
     Route: 048
     Dates: start: 20210712
  3. IBUPROFEN [Concomitant]
     Active Substance: IBUPROFEN
     Indication: Back pain
     Dosage: 600 MG
     Route: 065
     Dates: start: 2021
  4. FOLIC ACID [Concomitant]
     Active Substance: FOLIC ACID
     Indication: Product used for unknown indication
     Dosage: UNKNOWN
     Route: 065
     Dates: start: 2009
  5. HYDROXYUREA [Concomitant]
     Active Substance: HYDROXYUREA
     Indication: Anticoagulant therapy
     Dosage: 500 MG
     Route: 065
     Dates: start: 2009
  6. Oxycodone-HCl [Concomitant]
     Indication: Pain management
     Dosage: 5 MG
     Route: 065
     Dates: start: 2009

REACTIONS (2)
  - Sickle cell anaemia with crisis [Unknown]
  - Product dose omission issue [Unknown]

NARRATIVE: CASE EVENT DATE: 20220401
